FAERS Safety Report 12154112 (Version 1)
Quarter: 2016Q1

REPORT INFORMATION
  Report Type: Spontaneous
  Country: US (occurrence: None)
  Receive Date: 20160304
  Receipt Date: 20160304
  Transmission Date: 20160526
  Serious: No
  Sender: FDA-Public Use
  Company Number: None

PATIENT
  Age: 64 Year
  Sex: Female

DRUGS (1)
  1. METHOTREXATE 25MG/ML TEVA [Suspect]
     Active Substance: METHOTREXATE
     Indication: TEMPORAL ARTERITIS
     Route: 058
     Dates: start: 20150622

REACTIONS (2)
  - Gallbladder polyp [None]
  - Hepatic steatosis [None]

NARRATIVE: CASE EVENT DATE: 20160115
